FAERS Safety Report 4520744-0 (Version None)
Quarter: 2004Q4

REPORT INFORMATION
  Report Type: 
  Country: None (occurrence: None)
  Receive Date: 20041203
  Receipt Date: 20041022
  Transmission Date: 20050328
  Serious: Yes (Death, Hospitalization)
  Sender: FDA-Public Use
  Company Number: STA-AE-04-MTX-512

PATIENT
  Age: 81 Year
  Sex: Female

DRUGS (11)
  1. METHOTREXATE [Suspect]
     Indication: RHEUMATOID ARTHRITIS
     Dosage: 5 MG 1X PER 1 WK, ORAL
     Route: 048
     Dates: start: 20040513, end: 20040524
  2. APOREX (DEXTROPROPOXYPHENE HYDROCHLORIDE/PARACETAMOL) [Concomitant]
  3. IMOVANE (ZOPICLONE) [Concomitant]
  4. NAPREN-E (NAPROXEN) [Concomitant]
  5. ALBYL-E (ACETYLSALICYLIC ACID/MAGNESIUM OXIDE) [Concomitant]
  6. CELEBREX [Concomitant]
  7. TITRALAC (AMINOACETIC/CALCIUM CARBONATE) [Concomitant]
  8. FOLIC ACID [Concomitant]
  9. EPREX [Concomitant]
  10. DIGITOXIN TAB [Concomitant]
  11. REMERON [Concomitant]

REACTIONS (6)
  - AGRANULOCYTOSIS [None]
  - FEBRILE NEUTROPENIA [None]
  - HAEMATEMESIS [None]
  - PANCYTOPENIA [None]
  - PHARYNGOLARYNGEAL PAIN [None]
  - SEPSIS [None]
